FAERS Safety Report 6266815-2 (Version None)
Quarter: 2009Q3

REPORT INFORMATION
  Report Type: 
  Country: None (occurrence: None)
  Receive Date: 20090709
  Receipt Date: 20090709
  Transmission Date: 20100115
  Serious: Yes (Other)
  Sender: FDA-Public Use
  Company Number: None

PATIENT
  Age: 65 Year
  Sex: Female
  Weight: 70.3075 kg

DRUGS (1)
  1. AZITHROMYCIN [Suspect]
     Indication: BRONCHITIS
     Dosage: 1 DAY MOUTH
     Route: 048
     Dates: start: 20090518, end: 20090520

REACTIONS (7)
  - ABDOMINAL PAIN UPPER [None]
  - DIZZINESS [None]
  - DYSURIA [None]
  - NAUSEA [None]
  - PRURITUS [None]
  - URINARY TRACT INFECTION [None]
  - WEIGHT INCREASED [None]
